FAERS Safety Report 22304492 (Version 1)
Quarter: 2023Q2

REPORT INFORMATION
  Report Type: Spontaneous
  Country: US (occurrence: US)
  Receive Date: 20230510
  Receipt Date: 20230510
  Transmission Date: 20230721
  Serious: Yes (Other)
  Sender: FDA-Public Use
  Company Number: US-BRISTOL-MYERS SQUIBB COMPANY-2023-065984

PATIENT
  Age: 71 Year
  Sex: Female
  Weight: 65 kg

DRUGS (5)
  1. APIXABAN [Suspect]
     Active Substance: APIXABAN
     Indication: Deep vein thrombosis
  2. HEPARIN [Suspect]
     Active Substance: HEPARIN SODIUM
     Indication: Deep vein thrombosis
  3. HEPARIN [Suspect]
     Active Substance: HEPARIN SODIUM
     Dosage: SUBSEQUENTLY TRANSITIONED BACK TO HEPARIN
  4. ALTEPLASE [Suspect]
     Active Substance: ALTEPLASE
     Indication: Deep vein thrombosis
  5. RIVAROXABAN [Suspect]
     Active Substance: RIVAROXABAN
     Indication: Deep vein thrombosis

REACTIONS (1)
  - Retroperitoneal haemorrhage [Unknown]
